FAERS Safety Report 20422169 (Version 2)
Quarter: 2022Q1

REPORT INFORMATION
  Report Type: Report from Study
  Country: US (occurrence: US)
  Receive Date: 20220203
  Receipt Date: 20220212
  Transmission Date: 20220423
  Serious: Yes (Hospitalization, Other)
  Sender: FDA-Public Use
  Company Number: US-TEVA-2022-US-2002775

PATIENT
  Age: 39 Year
  Sex: Female

DRUGS (1)
  1. COPAXONE [Suspect]
     Active Substance: GLATIRAMER ACETATE
     Route: 065
     Dates: start: 20000129

REACTIONS (16)
  - Abdominal sepsis [Unknown]
  - Injection site cellulitis [Unknown]
  - Gallbladder operation [Unknown]
  - Injection site indentation [Unknown]
  - Fibromyalgia [Unknown]
  - Hypoacusis [Unknown]
  - Communication disorder [Unknown]
  - Injection site pain [Unknown]
  - Injection site mass [Unknown]
  - Injection site scab [Unknown]
  - Dyspepsia [Unknown]
  - Functional gastrointestinal disorder [Unknown]
  - Frequent bowel movements [Unknown]
  - Memory impairment [Unknown]
  - Fatigue [Unknown]
  - Sleep disorder [Unknown]

NARRATIVE: CASE EVENT DATE: 20050101
